FAERS Safety Report 23547396 (Version 2)
Quarter: 2024Q1

REPORT INFORMATION
  Report Type: Spontaneous
  Country: US (occurrence: US)
  Receive Date: 20240221
  Receipt Date: 20240312
  Transmission Date: 20240410
  Serious: Yes (Hospitalization, Other)
  Sender: FDA-Public Use
  Company Number: US-SA-SAC20240220000116

PATIENT
  Sex: Female

DRUGS (21)
  1. DUPIXENT [Suspect]
     Active Substance: DUPILUMAB
     Indication: Product used for unknown indication
     Dosage: 300 MG, QOW
     Route: 058
  2. TOBRAMYCIN [Concomitant]
     Active Substance: TOBRAMYCIN
  3. MEROPENEM [Concomitant]
     Active Substance: MEROPENEM
  4. FRANKINCENSE [Concomitant]
  5. VANCOMYCIN HYDROCHLORIDE [Concomitant]
     Active Substance: VANCOMYCIN HYDROCHLORIDE
  6. BREO ELLIPTA [Concomitant]
     Active Substance: FLUTICASONE FUROATE\VILANTEROL TRIFENATATE
  7. SPIRIVA RESPIMAT [Concomitant]
     Active Substance: TIOTROPIUM BROMIDE
  8. REDNISONE [Concomitant]
  9. JANVIA [Concomitant]
  10. BETAMETHASONE\CLOTRIMAZOLE [Concomitant]
     Active Substance: BETAMETHASONE\CLOTRIMAZOLE
  11. ALBUTEROL SULFATE [Concomitant]
     Active Substance: ALBUTEROL SULFATE
  12. FERROUS SULFATE [Concomitant]
     Active Substance: FERROUS SULFATE
  13. DALIRESP [Concomitant]
     Active Substance: ROFLUMILAST
  14. FUROSEMIDE [Concomitant]
     Active Substance: FUROSEMIDE
  15. FENOFIBRATE [Concomitant]
     Active Substance: FENOFIBRATE
  16. ESCITALOPRAM OXALATE [Concomitant]
     Active Substance: ESCITALOPRAM OXALATE
  17. CALCIUM [Concomitant]
     Active Substance: CALCIUM
  18. LEVOXYL [Concomitant]
     Active Substance: LEVOTHYROXINE SODIUM
  19. TYMLOS [Concomitant]
     Active Substance: ABALOPARATIDE
  20. VITAMIN D3 [Concomitant]
     Active Substance: CHOLECALCIFEROL
     Dosage: UNK
  21. VITAMIN C [Concomitant]
     Active Substance: ASCORBIC ACID

REACTIONS (6)
  - Adrenal insufficiency [Unknown]
  - Lung disorder [Unknown]
  - Hypotension [Unknown]
  - Asthenia [Unknown]
  - Malnutrition [Unknown]
  - Fatigue [Unknown]
